FAERS Safety Report 9726984 (Version 1)
Quarter: 2013Q4

REPORT INFORMATION
  Report Type: Spontaneous
  Country: US (occurrence: US)
  Receive Date: 20131203
  Receipt Date: 20131203
  Transmission Date: 20140711
  Serious: No
  Sender: FDA-Public Use
  Company Number: US-NOVEN-13US007474

PATIENT
  Sex: Female
  Weight: 44.99 kg

DRUGS (2)
  1. FENTANYL [Suspect]
     Indication: PAIN
     Dosage: 100 UG/HR, Q72HRS
     Route: 062
     Dates: start: 201307, end: 201307
  2. OXYCODONE [Concomitant]
     Dosage: UNK

REACTIONS (1)
  - Inadequate analgesia [Recovered/Resolved]
